FAERS Safety Report 16399605 (Version 2)
Quarter: 2020Q1

REPORT INFORMATION
  Report Type: Spontaneous
  Country: US (occurrence: US)
  Receive Date: 20190606
  Receipt Date: 20200228
  Transmission Date: 20200409
  Serious: No
  Sender: FDA-Public Use
  Company Number: US-SA-2019SA148265

PATIENT
  Age: 62 Year
  Sex: Male

DRUGS (2)
  1. LANTUS SOLOSTAR [Suspect]
     Active Substance: INSULIN GLARGINE
     Indication: TYPE 2 DIABETES MELLITUS
     Dosage: 32 IU, BID
     Route: 065
  2. LANTUS SOLOSTAR [Suspect]
     Active Substance: INSULIN GLARGINE
     Dosage: 55 IU, HS
     Route: 065

REACTIONS (6)
  - Inappropriate schedule of product administration [Unknown]
  - Device issue [Unknown]
  - Exposure via skin contact [Unknown]
  - Injection site haemorrhage [Unknown]
  - Eye irritation [Unknown]
  - Circumstance or information capable of leading to medication error [Unknown]
